FAERS Safety Report 5560889-X (Version None)
Quarter: 2007Q4

REPORT INFORMATION
  Report Type: 
  Country: None (occurrence: None)
  Receive Date: 20071215
  Receipt Date: 20071125
  Transmission Date: 20080405
  Serious: No
  Sender: FDA-Public Use
  Company Number: US-ABBOTT-07P-163-0426692-00

PATIENT
  Sex: Female
  Weight: 112.72 kg

DRUGS (3)
  1. HUMIRA [Suspect]
     Indication: RHEUMATOID ARTHRITIS
     Route: 058
     Dates: start: 20070501
  2. HUMIRA [Suspect]
     Indication: CROHN'S DISEASE
  3. ESOMEPRAZOLE MAGNESIUM [Concomitant]
     Indication: BARRETT'S OESOPHAGUS
     Route: 048

REACTIONS (3)
  - NASOPHARYNGITIS [None]
  - PHARYNGOLARYNGEAL PAIN [None]
  - UPPER RESPIRATORY TRACT INFECTION [None]
